FAERS Safety Report 24588226 (Version 2)
Quarter: 2025Q3

REPORT INFORMATION
  Report Type: Report from Study
  Country: CO (occurrence: CO)
  Receive Date: 20241107
  Receipt Date: 20250802
  Transmission Date: 20251020
  Serious: Yes (Death, Other)
  Sender: ALEXION PHARMACEUTICALS
  Company Number: CO-AstraZeneca-CH-00732547A

PATIENT
  Age: 64 Year
  Sex: Female

DRUGS (1)
  1. OSIMERTINIB [Suspect]
     Active Substance: OSIMERTINIB
     Indication: Lung neoplasm malignant
     Dosage: 80 MILLIGRAM, QD
     Dates: start: 20220921

REACTIONS (3)
  - Arthralgia [Unknown]
  - Cardio-respiratory arrest [Fatal]
  - Metastasis [Unknown]

NARRATIVE: CASE EVENT DATE: 20241009
